FAERS Safety Report 17476238 (Version 1)
Quarter: 2020Q1

REPORT INFORMATION
  Report Type: Spontaneous
  Country: GB (occurrence: GB)
  Receive Date: 20200228
  Receipt Date: 20200228
  Transmission Date: 20200409
  Serious: Yes (Life-Threatening, Hospitalization, Other)
  Sender: FDA-Public Use
  Company Number: GB-009507513-1912GBR000449

PATIENT
  Age: 64 Year
  Sex: Male
  Weight: 102 kg

DRUGS (2)
  1. PEMBROLIZUMAB. [Suspect]
     Active Substance: PEMBROLIZUMAB
     Indication: MALIGNANT MELANOMA STAGE IV
  2. PEMBROLIZUMAB. [Suspect]
     Active Substance: PEMBROLIZUMAB
     Indication: METASTASES TO LUNG
     Dosage: 400 MILLIGRAM, EVERY 6 WEEKS
     Route: 042
     Dates: start: 20191014, end: 20191121

REACTIONS (8)
  - Disorientation [Unknown]
  - Myasthenia gravis [Recovering/Resolving]
  - Incorrect dose administered [Unknown]
  - Productive cough [Unknown]
  - Pyrexia [Unknown]
  - Respiratory failure [Recovering/Resolving]
  - Atrial flutter [Unknown]
  - Inappropriate schedule of product administration [Unknown]

NARRATIVE: CASE EVENT DATE: 2019
